FAERS Safety Report 18337836 (Version 8)
Quarter: 2021Q3

REPORT INFORMATION
  Report Type: Spontaneous
  Country: US (occurrence: US)
  Receive Date: 20201002
  Receipt Date: 20210830
  Transmission Date: 20211014
  Serious: Yes (Hospitalization)
  Sender: FDA-Public Use
  Company Number: US-GLAXOSMITHKLINE-US2020AMR195774

PATIENT
  Sex: Female

DRUGS (6)
  1. ZEJULA [Suspect]
     Active Substance: NIRAPARIB
     Dosage: 200 MG, QD
     Route: 048
     Dates: start: 20200805
  2. ZEJULA [Suspect]
     Active Substance: NIRAPARIB
     Dosage: 200 MG, QD
     Route: 048
  3. ZEJULA [Suspect]
     Active Substance: NIRAPARIB
     Dosage: 200 MG, QD
     Route: 048
  4. ZEJULA [Suspect]
     Active Substance: NIRAPARIB
     Dosage: 200 MG, QD
     Route: 048
  5. ZEJULA [Suspect]
     Active Substance: NIRAPARIB
     Indication: OVARIAN CANCER
     Dosage: UNK
     Dates: start: 20200405
  6. ZEJULA [Suspect]
     Active Substance: NIRAPARIB
     Dosage: 200 MG, QD
     Route: 048

REACTIONS (12)
  - Fatigue [Not Recovered/Not Resolved]
  - Emotional distress [Unknown]
  - Hospitalisation [Recovered/Resolved]
  - Anaemia [Not Recovered/Not Resolved]
  - Abdominal distension [Unknown]
  - Confusional state [Unknown]
  - Dyspnoea [Recovering/Resolving]
  - Product dose omission in error [Unknown]
  - Chest discomfort [Recovering/Resolving]
  - Loss of personal independence in daily activities [Unknown]
  - Weight increased [Unknown]
  - Blood cholesterol increased [Unknown]
